FAERS Safety Report 4473903-X (Version None)
Quarter: 2004Q4

REPORT INFORMATION
  Report Type: 
  Country: None (occurrence: None)
  Receive Date: 20041008
  Receipt Date: 20041008
  Transmission Date: 20050328
  Serious: Yes (Life-Threatening, Other)
  Sender: FDA-Public Use
  Company Number: None

PATIENT
  Age: 63 Year
  Sex: Female
  Weight: 49.4421 kg

DRUGS (1)
  1. VIOXX [Suspect]
     Indication: ARTHRITIS
     Dosage: ONCE DAILY ORAL
     Route: 048
     Dates: start: 20040714, end: 20040724

REACTIONS (2)
  - HEART RATE INCREASED [None]
  - PALPITATIONS [None]
